FAERS Safety Report 25266764 (Version 1)
Quarter: 2025Q2

REPORT INFORMATION
  Report Type: Spontaneous
  Country: CZ (occurrence: CZ)
  Receive Date: 20250505
  Receipt Date: 20250505
  Transmission Date: 20250716
  Serious: Yes (Life-Threatening, Hospitalization, Other)
  Sender: TEVA
  Company Number: None

PATIENT
  Age: 79 Year
  Sex: Female
  Weight: 94 kg

DRUGS (15)
  1. CAPECITABINE [Suspect]
     Active Substance: CAPECITABINE
     Indication: Chemotherapy
     Dosage: 7TH CYCLE, 500 MG 5-0-4 FOR 14 DAYS (1-14), NEXT CYCLE IN 21 DAYS (2500 MG/M2 - DOSE CALCULATED 4...
     Route: 048
     Dates: start: 20250324
  2. CAPECITABINE [Suspect]
     Active Substance: CAPECITABINE
     Indication: Chemotherapy
     Dosage: 1ST CYCLE, 500 MG 5-0-4 FOR 14 DAYS (1-14), NEXT CYCLE IN 21 DAYS (2500 MG/M2 - DOSE CALCULATED 4...
     Route: 048
     Dates: start: 202408
  3. CAPECITABINE [Suspect]
     Active Substance: CAPECITABINE
     Indication: Chemotherapy
     Dosage: 6TH CYCLE, 500 MG 5-0-4 FOR 14 DAYS (1-14), NEXT CYCLE IN 21 DAYS (2500 MG/M2 - DOSE CALCULATED 4...
     Route: 048
     Dates: start: 202502
  4. CAPECITABINE [Suspect]
     Active Substance: CAPECITABINE
     Indication: Chemotherapy
     Dosage: 5TH CYCLE, 500 MG 5-0-4 FOR 14 DAYS (1-14), NEXT CYCLE IN 21 DAYS (2500 MG/M2 - DOSE CALCULATED 4...
     Route: 048
     Dates: start: 202501
  5. CAPECITABINE [Suspect]
     Active Substance: CAPECITABINE
     Indication: Chemotherapy
     Dosage: 2ND CYCLE, 500 MG 5-0-4 FOR 14 DAYS (1-14), NEXT CYCLE IN 21 DAYS (2500 MG/M2 - DOSE CALCULATED 4...
     Route: 048
     Dates: start: 202409
  6. CAPECITABINE [Suspect]
     Active Substance: CAPECITABINE
     Indication: Chemotherapy
     Dosage: 3RD CYCLE, 500 MG 5-0-4 FOR 14 DAYS (1-14), NEXT CYCLE IN 21 DAYS (2500 MG/M2 - DOSE CALCULATED 4...
     Route: 048
     Dates: start: 202411
  7. CAPECITABINE [Suspect]
     Active Substance: CAPECITABINE
     Indication: Chemotherapy
     Dosage: 4TH CYCLE, 500 MG 5-0-4 FOR 14 DAYS (1-14), NEXT CYCLE IN 21 DAYS (2500 MG/M2 - DOSE CALCULATED 4...
     Route: 048
     Dates: start: 202412
  8. ROSUVASTATIN CALCIUM [Concomitant]
     Active Substance: ROSUVASTATIN CALCIUM
     Indication: Dyslipidaemia
     Dosage: 0-0-1
     Route: 048
  9. Rhefluin [Concomitant]
     Indication: Hypertension
     Dosage: 1-0-0
     Route: 048
  10. OMEPRAZOLE [Concomitant]
     Active Substance: OMEPRAZOLE
     Indication: Prophylaxis against gastrointestinal ulcer
     Dosage: 1-0-0
     Route: 048
  11. FIASP [Concomitant]
     Active Substance: INSULIN ASPART
     Indication: Diabetes mellitus
     Route: 058
  12. TRESIBA [Concomitant]
     Active Substance: INSULIN DEGLUDEC
     Indication: Diabetes mellitus
     Route: 058
  13. Tanatril [Concomitant]
     Indication: Hypertension
     Dosage: 1-0-0
     Route: 048
  14. EUTHYROX [Concomitant]
     Active Substance: LEVOTHYROXINE SODIUM
     Indication: Hypothyroidism
     Dosage: 1-0-0
     Route: 048
  15. ENOXAPARIN SODIUM [Concomitant]
     Active Substance: ENOXAPARIN SODIUM
     Indication: Thrombosis prophylaxis
     Route: 058

REACTIONS (2)
  - Palmar-plantar erythrodysaesthesia syndrome [Recovered/Resolved]
  - Colitis [Recovered/Resolved]

NARRATIVE: CASE EVENT DATE: 20250328
